FAERS Safety Report 5913729-0 (Version None)
Quarter: 2008Q4

REPORT INFORMATION
  Report Type: 
  Country: None (occurrence: None)
  Receive Date: 20081007
  Receipt Date: 20080925
  Transmission Date: 20090506
  Serious: Yes (Hospitalization)
  Sender: FDA-Public Use
  Company Number: US024742

PATIENT

DRUGS (4)
  1. PROVIGIL [Suspect]
     Dosage: ORAL
     Route: 048
  2. KLONOPIN [Concomitant]
  3. TRILEPTAL [Concomitant]
  4. DILANTIN /00017401/ [Concomitant]

REACTIONS (4)
  - CONVULSION [None]
  - DRUG DISPENSING ERROR [None]
  - MEDICATION ERROR [None]
  - WRONG DRUG ADMINISTERED [None]
